FAERS Safety Report 7601672-0 (Version None)
Quarter: 2011Q3

REPORT INFORMATION
  Report Type: 
  Country: None (occurrence: None)
  Receive Date: 20110711
  Receipt Date: 20110627
  Transmission Date: 20111222
  Serious: Yes (Other)
  Sender: FDA-Public Use
  Company Number: PHHY2011US57217

PATIENT
  Sex: Female

DRUGS (5)
  1. EXFORGE [Suspect]
     Dosage: 320 MG VALSARTAN AND 5 MG AMLODIPINE, ONCE DAILY
  2. FISH OIL [Concomitant]
  3. AZELASTINE HCL [Concomitant]
  4. MULTI-VITAMINS [Concomitant]
  5. CALCIUM CARBONATE [Concomitant]

REACTIONS (3)
  - HYPOTENSION [None]
  - HEART RATE IRREGULAR [None]
  - VENTRICULAR EXTRASYSTOLES [None]
